FAERS Safety Report 5163381-X (Version None)
Quarter: 2006Q4

REPORT INFORMATION
  Report Type: 
  Country: None (occurrence: None)
  Receive Date: 20061124
  Receipt Date: 20061113
  Transmission Date: 20070319
  Serious: Yes (Other)
  Sender: FDA-Public Use
  Company Number: 2006140074

PATIENT
  Age: 68 Year
  Sex: Female

DRUGS (3)
  1. NORVASC [Suspect]
     Dosage: 10 MG
  2. LISINOPRIL [Suspect]
     Dosage: 10 MG
  3. CHLORTHALIDONE [Suspect]
     Dosage: 25 MG

REACTIONS (2)
  - CARDIAC VALVE DISEASE [None]
  - CARDIOMEGALY [None]
